FAERS Safety Report 4500600-4 (Version None)
Quarter: 2004Q4

REPORT INFORMATION
  Report Type: 
  Country: None (occurrence: None)
  Receive Date: 20041115
  Receipt Date: 20041104
  Transmission Date: 20050328
  Serious: Yes (Death)
  Sender: FDA-Public Use
  Company Number: US-JNJFOC-20041101527

PATIENT
  Age: 91 Year
  Sex: Female

DRUGS (1)
  1. REMINYL [Suspect]
     Route: 049

REACTIONS (1)
  - CEREBROVASCULAR ACCIDENT [None]
